FAERS Safety Report 16749707 (Version 9)
Quarter: 2021Q4

REPORT INFORMATION
  Report Type: Other
  Country: CA (occurrence: CA)
  Receive Date: 20190828
  Receipt Date: 20211117
  Transmission Date: 20220303
  Serious: Yes (Hospitalization, Other)
  Sender: FDA-Public Use
  Company Number: CA-002147023-PHHY2019CA194612

PATIENT
  Age: 60 Year
  Sex: Male

DRUGS (12)
  1. XOLAIR [Suspect]
     Active Substance: OMALIZUMAB
     Indication: Asthma
     Dosage: 375 MG, BIW
     Route: 058
     Dates: start: 20190510
  2. XOLAIR [Suspect]
     Active Substance: OMALIZUMAB
     Route: 058
     Dates: start: 20191108
  3. XOLAIR [Suspect]
     Active Substance: OMALIZUMAB
     Route: 058
     Dates: start: 20191220
  4. XOLAIR [Suspect]
     Active Substance: OMALIZUMAB
     Route: 058
     Dates: start: 20200103
  5. SYMBICORT [Concomitant]
     Active Substance: BUDESONIDE\FORMOTEROL FUMARATE DIHYDRATE
     Indication: Asthma
     Dosage: 2 DF, QID
     Route: 055
     Dates: start: 201810
  6. SPIRIVA [Concomitant]
     Active Substance: TIOTROPIUM BROMIDE MONOHYDRATE
     Indication: Asthma
     Dosage: 2 DF, QD
     Route: 055
     Dates: start: 201810
  7. VENTOLIN [Concomitant]
     Active Substance: ALBUTEROL SULFATE
     Indication: Asthma
     Dosage: 2 DF, PRN
     Route: 055
  8. XARELTO [Concomitant]
     Active Substance: RIVAROXABAN
     Indication: Hypertension
     Dosage: 1 DF, QD
     Route: 048
     Dates: start: 201811
  9. DILTIAZEM [Concomitant]
     Active Substance: DILTIAZEM
     Indication: Hypertension
     Dosage: 1 DF, TID
     Route: 048
     Dates: start: 201812
  10. SYNTHROID [Concomitant]
     Active Substance: LEVOTHYROXINE SODIUM
     Indication: Hypertension
     Dosage: 1 DF, QD
     Route: 048
     Dates: start: 2017
  11. ROSUVASTATIN [Concomitant]
     Active Substance: ROSUVASTATIN
     Indication: Blood cholesterol increased
     Dosage: 1 DF, QD
     Route: 048
     Dates: start: 2014
  12. CORTISONE [Concomitant]
     Active Substance: CORTISONE
     Indication: Product used for unknown indication
     Dosage: IN DECREASING DOSES
     Route: 065

REACTIONS (13)
  - Crohn^s disease [Unknown]
  - Diarrhoea haemorrhagic [Recovering/Resolving]
  - Colitis [Unknown]
  - Dyspnoea [Unknown]
  - Haematochezia [Unknown]
  - Colitis ulcerative [Unknown]
  - Pulmonary oedema [Unknown]
  - Weight decreased [Unknown]
  - Muscle atrophy [Unknown]
  - Productive cough [Unknown]
  - Bronchitis [Unknown]
  - Sputum discoloured [Unknown]
  - Drug ineffective [Unknown]

NARRATIVE: CASE EVENT DATE: 20191119
